FAERS Safety Report 20941845 (Version 6)
Quarter: 2022Q3

REPORT INFORMATION
  Report Type: Other
  Country: DE (occurrence: DE)
  Receive Date: 20220610
  Receipt Date: 20220708
  Transmission Date: 20221026
  Serious: Yes (Death, Other)
  Sender: FDA-Public Use
  Company Number: DE-CELLTRION INC.-2022DE008913

PATIENT

DRUGS (12)
  1. RITUXIMAB [Suspect]
     Active Substance: RITUXIMAB
     Indication: Follicular lymphoma
     Dosage: UNK, CYCLIC (ADDITIONAL INFO: (IN COMBINATION WITH LENALIDOMIDE, SECOND LINE, MAGNIFY STUDY; IN COMB
     Route: 065
  2. RITUXIMAB [Suspect]
     Active Substance: RITUXIMAB
     Dosage: IN COMBINATION WITH LENALIDOMIDE, SECOND LINE, MAGNIFY STUDY; IN COMBINATION WITH BENDAMUSTIN, THIRD
     Route: 065
  3. BENDAMUSTINE [Suspect]
     Active Substance: BENDAMUSTINE
     Indication: Follicular lymphoma
     Dosage: UNK, CYCLIC
     Route: 065
  4. BENDAMUSTINE [Suspect]
     Active Substance: BENDAMUSTINE
     Dosage: IN COMBINATION WITH RITUXIMAB, THIRD LINE
     Route: 065
  5. BENDAMUSTINE [Suspect]
     Active Substance: BENDAMUSTINE
     Dosage: POWDER (EXCEPT DUSTING POWDER), UNK UNK, CYCLIC (IN COMBINATION WITH RITUXIMAB, THIRD LINE, INTRAVEN
     Route: 050
  6. BENDAMUSTINE HYDROCHLORIDE [Suspect]
     Active Substance: BENDAMUSTINE HYDROCHLORIDE
     Indication: Follicular lymphoma
     Dosage: UNK UNK, CYCLIC (IN COMBINATION WITH RITUXIMAB, THIRD LINE
     Route: 042
  7. BENDAMUSTINE HYDROCHLORIDE [Suspect]
     Active Substance: BENDAMUSTINE HYDROCHLORIDE
     Indication: Follicular lymphoma
     Dosage: UNK UNK, CYCLIC (IN COMBINATION WITH RITUXIMAB, THIRD LINE)/UNK UNK, CYCLIC (IN COMBINATION WITH RIT
     Route: 042
  8. OBINUTUZUMAB [Suspect]
     Active Substance: OBINUTUZUMAB
     Indication: Follicular lymphoma
     Dosage: UNK UNK, UNKNOWN FREQ. (IN COMBINATION WITH IBRUTINIB, FIRST LINE, ALTERNATIVE STUDY)
     Route: 065
  9. OBINUTUZUMAB [Suspect]
     Active Substance: OBINUTUZUMAB
     Dosage: IN COMBINATION WITH IBRUTINIB, FIRST LINE, ALTERNATIVE STUDY
     Route: 065
  10. IBRUTINIB [Suspect]
     Active Substance: IBRUTINIB
     Indication: Follicular lymphoma
     Dosage: UNK UNK, UNKNOWN FREQ. (IN COMBINATION WITH OBINUTUZUMAB, FIRST LINE, ALTERNATIVE STUDY)
     Route: 065
  11. LENALIDOMIDE [Suspect]
     Active Substance: LENALIDOMIDE
     Indication: Follicular lymphoma
     Dosage: UNK UNK, UNKNOWN FREQ. (IN COMBINATION WITH RITUXIMAB, SECOND LINE, MAGNIFY STUDY)
     Route: 065
  12. LENALIDOMIDE [Suspect]
     Active Substance: LENALIDOMIDE
     Dosage: N COMBINATION WITH RITUXIMAB, SECOND LINE, MAGNIFY STUDYUNK
     Route: 065

REACTIONS (3)
  - Septic shock [Fatal]
  - Malignant neoplasm progression [Not Recovered/Not Resolved]
  - Lymphoma [Not Recovered/Not Resolved]
